FAERS Safety Report 5003631-3 (Version None)
Quarter: 2006Q2

REPORT INFORMATION
  Report Type: 
  Country: None (occurrence: None)
  Receive Date: 20060516
  Receipt Date: 20060131
  Transmission Date: 20061013
  Serious: Yes (Hospitalization, Disabling, Other)
  Sender: FDA-Public Use
  Company Number: US-MERCK-0602USA00104

PATIENT
  Age: 84 Year
  Sex: Male
  Weight: 75 kg

DRUGS (2)
  1. VIOXX [Suspect]
     Indication: OSTEOARTHRITIS
     Route: 048
     Dates: start: 19991201, end: 20020301
  2. PROSCAR [Concomitant]
     Route: 065

REACTIONS (16)
  - ANHEDONIA [None]
  - ARRHYTHMIA [None]
  - BRADYCARDIA [None]
  - CATARACT [None]
  - CEREBRAL ARTERY OCCLUSION [None]
  - CEREBROVASCULAR ACCIDENT [None]
  - GALLBLADDER DISORDER [None]
  - HYPERTENSION [None]
  - HYPOTENSION [None]
  - OESOPHAGEAL DISORDER [None]
  - PAIN [None]
  - PANCREATOLITHIASIS [None]
  - RESPIRATORY ARREST [None]
  - SINUS BRADYCARDIA [None]
  - TUBERCULOSIS [None]
  - VISION BLURRED [None]
